FAERS Safety Report 5023081-3 (Version None)
Quarter: 2006Q2

REPORT INFORMATION
  Report Type: 
  Country: None (occurrence: None)
  Receive Date: 20060605
  Receipt Date: 20060523
  Transmission Date: 20061013
  Serious: Yes (Hospitalization)
  Sender: FDA-Public Use
  Company Number: GXKR2006HR02973

PATIENT
  Age: 61 Year
  Sex: Female

DRUGS (2)
  1. ELMOGAN (NGX) (GEMFIBROZIL) [Suspect]
     Indication: BLOOD TRIGLYCERIDES INCREASED
     Dosage: 600 MG, QD, ORAL
     Route: 048
  2. INTRON A [Suspect]
     Indication: MALIGNANT MELANOMA
     Dosage: 6 X 10 6 UNITS, QW3, SUBCUTANEOUS
     Route: 058

REACTIONS (4)
  - BLOOD TRIGLYCERIDES INCREASED [None]
  - CONDITION AGGRAVATED [None]
  - DRUG INTERACTION [None]
  - HEPATITIS [None]
